FAERS Safety Report 6368708-9 (Version None)
Quarter: 2009Q3

REPORT INFORMATION
  Report Type: 
  Country: None (occurrence: None)
  Receive Date: 20090917
  Receipt Date: 20090917
  Transmission Date: 20100115
  Serious: Yes (Other)
  Sender: FDA-Public Use
  Company Number: None

PATIENT
  Sex: Female
  Weight: 65 kg

DRUGS (1)
  1. YAZ [Suspect]
     Indication: PREMENSTRUAL SYNDROME
     Dosage: ONE TABLET PER DAY PO
     Route: 048
     Dates: start: 20090909, end: 20090915

REACTIONS (3)
  - AGITATION [None]
  - ANXIETY [None]
  - DEPRESSION [None]
